FAERS Safety Report 8974531 (Version 7)
Quarter: 2013Q1

REPORT INFORMATION
  Report Type: Spontaneous
  Country: IT (occurrence: IT)
  Receive Date: 20121219
  Receipt Date: 20130311
  Transmission Date: 20140127
  Serious: Yes (Life-Threatening, Hospitalization)
  Sender: FDA-Public Use
  Company Number: IT-GILEAD-2012-0066603

PATIENT
  Age: 53 Year
  Sex: Male

DRUGS (21)
  1. ATRIPLA [Suspect]
     Indication: HIV INFECTION
     Dosage: 1 DF, QD
     Route: 048
     Dates: start: 20121205, end: 20121207
  2. ATRIPLA [Suspect]
     Indication: HEPATITIS B
  3. PROPOFOL [Suspect]
     Indication: PRODUCT USED FOR UNKNOWN INDICATION
     Dosage: 2 MG/KG, UNK
     Dates: start: 20121204, end: 20121207
  4. DOPAMINE [Concomitant]
     Dosage: UNK
     Route: 042
     Dates: start: 20121204, end: 20121207
  5. MIDAZOLAM [Concomitant]
     Dosage: UNK
     Route: 042
     Dates: start: 20121204, end: 20121207
  6. FENTANEST [Concomitant]
     Dosage: UNK
     Dates: start: 20121204, end: 20121207
  7. PANTOPRAZOLE [Concomitant]
     Dosage: UNK
     Dates: start: 20121201, end: 20121214
  8. METOCLOPRAMID                      /00041901/ [Concomitant]
     Dosage: UNK
     Dates: start: 20121201, end: 20121214
  9. LASIX                              /00032601/ [Concomitant]
     Dosage: UNK
     Route: 042
     Dates: start: 20121201, end: 20121214
  10. TAZOCIN [Concomitant]
     Dosage: UNK
     Dates: start: 20121206, end: 20121214
  11. ALBUMIN [Concomitant]
     Dosage: UNK
     Dates: start: 20121205, end: 20121214
  12. CLEXANE [Concomitant]
     Dosage: UNK
     Dates: start: 20121204, end: 20121214
  13. NUTRISON [Concomitant]
     Dosage: UNK
     Dates: start: 20121204, end: 20121214
  14. CALCIUM CHLORIDE W/MAGNESIUM CHLORIDE [Concomitant]
     Dosage: 1 DF, BID
  15. NET/SODIUM CHLORIDE [Concomitant]
     Dosage: 3 DF, QD
  16. IDROPLURIVIT [Concomitant]
  17. PROBIOTIC                          /06395501/ [Concomitant]
     Dosage: 1 DF, BID
     Dates: start: 20121201, end: 20121204
  18. FUROSEMIDE [Concomitant]
     Dosage: 25 MG, BID
     Dates: start: 20121201
  19. ULTIVA [Concomitant]
     Dosage: UNK
     Route: 042
     Dates: start: 20121206
  20. NORVASC [Concomitant]
  21. TRIATEC                            /00885601/ [Concomitant]

REACTIONS (7)
  - Rhabdomyolysis [Recovering/Resolving]
  - Renal failure acute [Not Recovered/Not Resolved]
  - Septic shock [Unknown]
  - Cerebral haemorrhage [Unknown]
  - Unevaluable event [Unknown]
  - Pleural effusion [Unknown]
  - Pneumonia [Unknown]
